FAERS Safety Report 5669402-X (Version None)
Quarter: 2008Q1

REPORT INFORMATION
  Report Type: 
  Country: None (occurrence: None)
  Receive Date: 20080317
  Receipt Date: 20080229
  Transmission Date: 20080703
  Serious: Yes (Hospitalization, Congenital Anomaly)
  Sender: FDA-Public Use
  Company Number: A0683111A

PATIENT
  Sex: Female
  Weight: 2.2 kg

DRUGS (3)
  1. PAXIL [Suspect]
     Indication: DRUG USE FOR UNKNOWN INDICATION
  2. PAROXETINE HCL [Suspect]
     Indication: DRUG USE FOR UNKNOWN INDICATION
  3. VITAMIN TAB [Concomitant]

REACTIONS (8)
  - CARDIAC DISORDER [None]
  - DRUG EXPOSURE DURING PREGNANCY [None]
  - PREMATURE BABY [None]
  - RESPIRATORY DISTRESS [None]
  - RHABDOMYOMA [None]
  - SUPRAVENTRICULAR TACHYCARDIA [None]
  - TRANSIENT TACHYPNOEA OF THE NEWBORN [None]
  - VENTRICULAR SEPTAL DEFECT [None]
